FAERS Safety Report 7215448-X (Version None)
Quarter: 2011Q1

REPORT INFORMATION
  Report Type: 
  Country: None (occurrence: None)
  Receive Date: 20110107
  Receipt Date: 20110105
  Transmission Date: 20110831
  Serious: Yes (Death, Other)
  Sender: FDA-Public Use
  Company Number: US-ROCHE-747368

PATIENT
  Sex: Male

DRUGS (15)
  1. FOLIC ACID [Concomitant]
     Route: 048
  2. TORSEMIDE [Concomitant]
     Route: 048
  3. NEURONTIN [Concomitant]
     Route: 048
  4. RAPAMUNE [Concomitant]
     Route: 048
  5. MIDODRINE HYDROCHLORIDE [Concomitant]
     Indication: HYPOTENSION
     Route: 048
  6. PREDNISONE [Concomitant]
     Route: 048
  7. NOVOLOG [Concomitant]
     Indication: DIABETES MELLITUS
     Dosage: DOSE: 55
     Route: 058
  8. CRESTOR [Concomitant]
     Route: 048
  9. ALLOPURINOL [Concomitant]
     Indication: GOUT
     Route: 048
  10. COUMADIN [Concomitant]
     Indication: ATRIAL FIBRILLATION
     Route: 048
  11. LANTUS [Concomitant]
     Indication: DIABETES MELLITUS
     Dosage: DOSE: 20 UNITS; ONCE DAILY IN THE EVENING
     Route: 058
  12. TUMS [Concomitant]
     Route: 048
  13. PROCRIT [Concomitant]
     Route: 058
  14. CELLCEPT [Suspect]
     Dosage: DOSE: 200/500
     Route: 048
     Dates: start: 19891224
  15. OMEGA-3 TRIGLYCERIDES [Concomitant]
     Dosage: FREQ: QD; DRUG REPORTED AS OMEGA-3 FISH OIL
     Route: 048

REACTIONS (4)
  - DEATH [None]
  - RENAL FAILURE CHRONIC [None]
  - DIABETIC COMPLICATION [None]
  - SQUAMOUS CELL CARCINOMA OF SKIN [None]
